FAERS Safety Report 12429508 (Version 1)
Quarter: 2016Q2

REPORT INFORMATION
  Report Type: Spontaneous
  Country: IN (occurrence: IN)
  Receive Date: 20160602
  Receipt Date: 20160602
  Transmission Date: 20160815
  Serious: Yes (Other)
  Sender: FDA-Public Use
  Company Number: IN-BAUSCH-BL-2016-012815

PATIENT
  Age: 56 Year
  Sex: Male

DRUGS (12)
  1. DOXORUBICIN [Suspect]
     Active Substance: DOXORUBICIN
     Indication: METASTATIC NEOPLASM
  2. FLUOROURACIL. [Suspect]
     Active Substance: FLUOROURACIL
     Indication: METASTATIC NEOPLASM
  3. VINCRISTINE [Suspect]
     Active Substance: VINCRISTINE
     Indication: ECCRINE CARCINOMA
     Route: 065
  4. VINCRISTINE [Suspect]
     Active Substance: VINCRISTINE
     Indication: METASTATIC NEOPLASM
  5. MITOMYCIN. [Suspect]
     Active Substance: MITOMYCIN
     Indication: METASTATIC NEOPLASM
  6. BLEOMYCIN [Suspect]
     Active Substance: BLEOMYCIN SULFATE
     Indication: ECCRINE CARCINOMA
     Route: 065
  7. CISPLATIN. [Suspect]
     Active Substance: CISPLATIN
     Indication: METASTATIC NEOPLASM
  8. DOXORUBICIN [Suspect]
     Active Substance: DOXORUBICIN
     Indication: ECCRINE CARCINOMA
     Route: 065
  9. FLUOROURACIL. [Suspect]
     Active Substance: FLUOROURACIL
     Indication: ECCRINE CARCINOMA
     Route: 065
  10. CISPLATIN. [Suspect]
     Active Substance: CISPLATIN
     Indication: ECCRINE CARCINOMA
     Route: 065
  11. MITOMYCIN. [Suspect]
     Active Substance: MITOMYCIN
     Indication: ECCRINE CARCINOMA
     Route: 065
  12. BLEOMYCIN [Suspect]
     Active Substance: BLEOMYCIN SULFATE
     Indication: METASTATIC NEOPLASM

REACTIONS (2)
  - Eccrine carcinoma [Unknown]
  - Product use issue [Unknown]
